FAERS Safety Report 25985597 (Version 1)
Quarter: 2025Q4

REPORT INFORMATION
  Report Type: Spontaneous
  Country: CN (occurrence: CN)
  Receive Date: 20251031
  Receipt Date: 20251031
  Transmission Date: 20260117
  Serious: Yes (Hospitalization, Other)
  Sender: MERCK SHARP & DOHME LLC
  Company Number: CN-009507513-2343756

PATIENT
  Age: 35 Year
  Sex: Male

DRUGS (1)
  1. KEYTRUDA [Suspect]
     Active Substance: PEMBROLIZUMAB
     Indication: Hepatic cancer
     Dosage: TIME INTERVAL: TOTAL: 200 MG, ONCE
     Route: 041
     Dates: start: 20250924, end: 20250924

REACTIONS (5)
  - Transcatheter arterial chemoembolisation [Unknown]
  - Myocarditis [Recovering/Resolving]
  - Malignant neoplasm progression [Unknown]
  - Regional chemotherapy [Unknown]
  - Viral hepatitis carrier [Unknown]

NARRATIVE: CASE EVENT DATE: 20250101
